FAERS Safety Report 19614866 (Version 2)
Quarter: 2021Q3

REPORT INFORMATION
  Report Type: Spontaneous
  Country: DE (occurrence: DE)
  Receive Date: 20210727
  Receipt Date: 20210805
  Transmission Date: 20211014
  Serious: Yes (Life-Threatening, Hospitalization, Disabling, Other)
  Sender: FDA-Public Use
  Company Number: DE-MYLANLABS-2021M1044696

PATIENT
  Age: 78 Year
  Sex: Male
  Weight: 90 kg

DRUGS (41)
  1. DUPIXENT [Suspect]
     Active Substance: DUPILUMAB
     Dosage: 200 MILLIGRAM, Q2W
     Route: 058
     Dates: start: 20191119
  2. DUPIXENT [Suspect]
     Active Substance: DUPILUMAB
     Dosage: 200 MILLIGRAM, Q2W
     Route: 058
     Dates: start: 20190910
  3. DUPIXENT [Suspect]
     Active Substance: DUPILUMAB
     Dosage: 300 MILLIGRAM, Q2W (300 MG, QOW)
     Route: 058
     Dates: start: 20191105
  4. METAMIZOLE [Concomitant]
     Active Substance: METAMIZOLE
     Indication: PAIN
     Dosage: 20 DROP, Q6H, 20 ? 20 ? 20 ? 20 DROPS,
     Dates: start: 201912
  5. DECORTIN?H                         /00016201/ [Concomitant]
     Active Substance: PREDNISOLONE
     Dosage: 1 DOSAGE FORM, AM
  6. DECORTIN?H                         /00016201/ [Concomitant]
     Active Substance: PREDNISOLONE
     Dosage: 1 DOSAGE FORM, QD (1 ? 0 ? 0 TABLETS DAILY, QD)
  7. PREGABALIN. [Concomitant]
     Active Substance: PREGABALIN
     Indication: NEUROLOGICAL SYMPTOM
     Dosage: UNK
     Route: 048
     Dates: start: 201912
  8. FENISTIL [Concomitant]
     Active Substance: DIMETHINDENE
     Dosage: UNK, PRN,0 ? 0 ? 0 ? 2
  9. DUPIXENT [Suspect]
     Active Substance: DUPILUMAB
     Indication: NEURODERMATITIS
     Dosage: 300 MILLIGRAM, Q2W
     Route: 058
     Dates: start: 20190827
  10. DUPIXENT [Suspect]
     Active Substance: DUPILUMAB
     Dosage: 600 MILLIGRAM, Q2W
     Route: 058
     Dates: start: 20190506, end: 20190506
  11. SILONDA [Concomitant]
     Dosage: 1 DOSAGE FORM
  12. ATORVASTATIN [Concomitant]
     Active Substance: ATORVASTATIN
     Indication: HYPOLIPIDAEMIA
     Dosage: 20 MILLIGRAM, QD
  13. ASPIRIN                            /00002701/ [Concomitant]
     Active Substance: ASPIRIN
     Dosage: 1 DOSAGE FORM
  14. GABAPENTIN. [Concomitant]
     Active Substance: GABAPENTIN
     Dosage: 1 DOSAGE FORM, QD
  15. PREDNISOLONE. [Concomitant]
     Active Substance: PREDNISOLONE
     Dosage: 15 MILLIGRAM, QD
     Dates: start: 2019
  16. PANTOPRAZOLE [Concomitant]
     Active Substance: PANTOPRAZOLE
     Indication: GASTROINTESTINAL DISORDER PROPHYLAXIS
     Dosage: 20 MILLIGRAM, QD
     Route: 048
  17. DUPIXENT [Suspect]
     Active Substance: DUPILUMAB
     Dosage: 200 MILLIGRAM, Q2W
     Route: 058
     Dates: start: 20191021
  18. MOMECUTAN [Concomitant]
     Active Substance: MOMETASONE FUROATE
     Dosage: 2 DOSAGE FORM, QW (2 DF, QW)
     Route: 061
  19. IBUPROFEN. [Concomitant]
     Active Substance: IBUPROFEN
     Indication: ARTHRALGIA
     Dosage: UNK
  20. PREDNISOLONE. [Concomitant]
     Active Substance: PREDNISOLONE
     Indication: DERMATITIS ATOPIC
     Dosage: 25 MILLIGRAM, QD
     Route: 048
  21. PREDNISOLONE. [Concomitant]
     Active Substance: PREDNISOLONE
     Dosage: 13.5 MILLIGRAM, QD
     Dates: start: 2019
  22. PREDNISOLONE. [Concomitant]
     Active Substance: PREDNISOLONE
     Dosage: 6 MILLIGRAM, QD
  23. GABAPENTIN. [Concomitant]
     Active Substance: GABAPENTIN
     Dosage: UNK
  24. PREGABALIN. [Concomitant]
     Active Substance: PREGABALIN
     Indication: NEURALGIA
  25. ATORBEM [Concomitant]
     Dosage: 1 DOSAGE FORM, QD
  26. DUPIXENT [Suspect]
     Active Substance: DUPILUMAB
     Dosage: 300 MILLIGRAM, Q2W
     Route: 058
     Dates: start: 20190520
  27. DUPIXENT [Suspect]
     Active Substance: DUPILUMAB
     Dosage: UNK
     Route: 058
     Dates: start: 201904
  28. MOMECUTAN [Concomitant]
     Active Substance: MOMETASONE FUROATE
     Indication: DERMATITIS ATOPIC
     Dosage: 1 DOSAGE FORM, QW
     Route: 061
  29. PREDNISOLONE. [Concomitant]
     Active Substance: PREDNISOLONE
     Dosage: 7.5 MILLIGRAM, QD
     Dates: start: 2019
  30. DUPIXENT [Suspect]
     Active Substance: DUPILUMAB
     Dosage: 200 MILLIGRAM, Q2W
     Route: 058
     Dates: start: 20191105
  31. DUPIXENT [Suspect]
     Active Substance: DUPILUMAB
     Dosage: 300 MILLIGRAM, Q2W (300 MG, QOW)
     Route: 058
     Dates: start: 20190910
  32. DECORTIN?H                         /00016201/ [Concomitant]
     Active Substance: PREDNISOLONE
     Dosage: 1 DOSAGE FORM, QD (1 ? 0 ? 0 TABLETS DAILY, QD)
  33. MOMECUTAN [Concomitant]
     Active Substance: MOMETASONE FUROATE
     Dosage: UNK (UNK, QOD FOR 1 WEEK)
     Route: 061
  34. PREDNISOLONE. [Concomitant]
     Active Substance: PREDNISOLONE
     Dosage: 6 MILLIGRAM
     Route: 048
  35. PREDNISOLONE. [Concomitant]
     Active Substance: PREDNISOLONE
     Dosage: 5 MILLIGRAM, QD
  36. TAMSULOSIN [Concomitant]
     Active Substance: TAMSULOSIN
     Indication: BENIGN PROSTATIC HYPERPLASIA
     Dosage: 0.4 MILLIGRAM, QD
     Route: 048
  37. DUPIXENT [Suspect]
     Active Substance: DUPILUMAB
     Dosage: 300 MILLIGRAM, Q2W
     Route: 058
     Dates: start: 20191203, end: 20200103
  38. DUPIXENT [Suspect]
     Active Substance: DUPILUMAB
     Dosage: 300 MILLIGRAM, Q2W
     Route: 058
     Dates: start: 201907
  39. ASPIRIN. [Concomitant]
     Active Substance: ASPIRIN
     Dosage: 100 MILLIGRAM
  40. RAMIPRIL MYLAN [Suspect]
     Active Substance: RAMIPRIL
     Indication: PRODUCT USED FOR UNKNOWN INDICATION
     Dosage: UNK
  41. DUPIXENT [Suspect]
     Active Substance: DUPILUMAB
     Indication: DERMATITIS ATOPIC
     Dosage: 300 MILLIGRAM, Q2W
     Route: 058
     Dates: start: 20190603

REACTIONS (32)
  - Intervertebral disc operation [Unknown]
  - Medication error [Unknown]
  - Myalgia [Recovered/Resolved]
  - Pyrexia [Recovered/Resolved]
  - Agitation [Unknown]
  - Intentional product misuse [Unknown]
  - Personality change [Recovered/Resolved]
  - Pain [Unknown]
  - Organic brain syndrome [Unknown]
  - Meningitis [Unknown]
  - Febrile infection [Unknown]
  - Hyporeflexia [Unknown]
  - Vomiting [Unknown]
  - Hypoacusis [Unknown]
  - Vasculitis [Unknown]
  - Drug ineffective [Unknown]
  - Confusional state [Unknown]
  - Memory impairment [Unknown]
  - Skin atrophy [Unknown]
  - Incorrect route of product administration [Unknown]
  - Disorientation [Recovered/Resolved]
  - Aphasia [Unknown]
  - Hallucination, visual [Unknown]
  - Hypoaesthesia [Unknown]
  - Neuralgia [Unknown]
  - Pruritus [Unknown]
  - Hallucination [Unknown]
  - Autoimmune encephalopathy [Recovered/Resolved]
  - Brain oedema [Unknown]
  - Dermatitis atopic [Unknown]
  - Fatigue [Unknown]
  - Nausea [Unknown]

NARRATIVE: CASE EVENT DATE: 201906
